FAERS Safety Report 5995689-X (Version None)
Quarter: 2008Q4

REPORT INFORMATION
  Report Type: 
  Country: None (occurrence: None)
  Receive Date: 20081212
  Receipt Date: 20080613
  Transmission Date: 20090506
  Serious: No
  Sender: FDA-Public Use
  Company Number: US-AMGEN-KDL287026

PATIENT
  Sex: Female

DRUGS (2)
  1. ENBREL [Suspect]
     Indication: RHEUMATOID ARTHRITIS
     Route: 058
  2. METHOTREXATE [Concomitant]

REACTIONS (9)
  - BRONCHITIS [None]
  - GENITAL INFECTION FEMALE [None]
  - HEPATIC ENZYME INCREASED [None]
  - INJECTION SITE IRRITATION [None]
  - INJECTION SITE PAIN [None]
  - LARYNGITIS [None]
  - MUSCLE DISORDER [None]
  - PAIN [None]
  - STAPHYLOCOCCAL INFECTION [None]
